FAERS Safety Report 7996193-X (Version None)
Quarter: 2011Q4

REPORT INFORMATION
  Report Type: 
  Country: None (occurrence: None)
  Receive Date: 20111220
  Receipt Date: 20111213
  Transmission Date: 20120403
  Serious: Yes (Hospitalization)
  Sender: FDA-Public Use
  Company Number: US-ASTRAZENECA-2009UW08293

PATIENT
  Age: 37 Year
  Sex: Female
  Weight: 104.3 kg

DRUGS (6)
  1. OTHER MEDICATION [Concomitant]
  2. SEROQUEL [Suspect]
     Indication: MOOD SWINGS
     Route: 048
  3. TOPROMAX [Concomitant]
  4. SEROQUEL [Suspect]
     Indication: BIPOLAR DISORDER
     Route: 048
  5. TORZINE [Concomitant]
     Indication: SLEEP DISORDER
  6. AMBIEN [Concomitant]
     Indication: SLEEP DISORDER

REACTIONS (4)
  - OFF LABEL USE [None]
  - HYPERSOMNIA [None]
  - HOMICIDAL IDEATION [None]
  - SUICIDAL IDEATION [None]
